FAERS Safety Report 9185978 (Version 3)
Quarter: 2013Q4

REPORT INFORMATION
  Report Type: Spontaneous
  Country: AR (occurrence: AR)
  Receive Date: 20130325
  Receipt Date: 20131031
  Transmission Date: 20140711
  Serious: Yes (Other)
  Sender: FDA-Public Use
  Company Number: AR-AMGEN-ARGSP2013019702

PATIENT
  Age: 55 Year
  Sex: Female

DRUGS (2)
  1. ENBREL [Suspect]
     Indication: PSORIASIS
     Dosage: 50 MG, WEEKLY
     Route: 065
     Dates: start: 20120512
  2. ENBREL [Suspect]
     Dosage: 50 MG, EVERY 10 DAYS
     Route: 065
     Dates: start: 201205

REACTIONS (7)
  - Oropharyngeal pain [Recovered/Resolved]
  - Renal disorder [Recovered/Resolved]
  - Pyrexia [Recovered/Resolved]
  - Decreased immune responsiveness [Recovered/Resolved]
  - Blood pressure increased [Unknown]
  - Psoriasis [Not Recovered/Not Resolved]
  - Urinary tract infection [Recovered/Resolved]
